FAERS Safety Report 18430784 (Version 1)
Quarter: 2020Q4

REPORT INFORMATION
  Report Type: Spontaneous
  Country: GB (occurrence: GB)
  Receive Date: 20201027
  Receipt Date: 20201027
  Transmission Date: 20210114
  Serious: Yes (Life-Threatening)
  Sender: FDA-Public Use
  Company Number: GB-TEVA-2020-GB-1840919

PATIENT
  Age: 50 Year
  Sex: Female
  Weight: 59 kg

DRUGS (1)
  1. PACLITAXEL. [Suspect]
     Active Substance: PACLITAXEL
     Indication: BREAST CANCER
     Dosage: 241 MG
     Route: 042
     Dates: start: 20200810, end: 20200810

REACTIONS (4)
  - Asthenia [Unknown]
  - Anaphylactic reaction [Recovered/Resolved]
  - Alopecia [Unknown]
  - Oral pain [Unknown]

NARRATIVE: CASE EVENT DATE: 20200810
